FAERS Safety Report 12312904 (Version 1)
Quarter: 2016Q2

REPORT INFORMATION
  Report Type: Spontaneous
  Country: US (occurrence: US)
  Receive Date: 20160428
  Receipt Date: 20160428
  Transmission Date: 20160815
  Serious: No
  Sender: FDA-Public Use
  Company Number: US-ASTRAZENECA-2016SE38051

PATIENT
  Sex: Female

DRUGS (1)
  1. BRILINTA [Suspect]
     Active Substance: TICAGRELOR
     Dosage: UNKNOWN
     Route: 048

REACTIONS (5)
  - Diarrhoea [Unknown]
  - Dizziness [Unknown]
  - Dyspnoea [Unknown]
  - Headache [Unknown]
  - Vomiting [Unknown]
